FAERS Safety Report 23139060 (Version 1)
Quarter: 2023Q4

REPORT INFORMATION
  Report Type: Spontaneous
  Country: US (occurrence: US)
  Receive Date: 20231102
  Receipt Date: 20231102
  Transmission Date: 20240110
  Serious: Yes (Death, Other)
  Sender: FDA-Public Use
  Company Number: US-AMGEN-USASP2023192805

PATIENT

DRUGS (8)
  1. RITUXIMAB [Suspect]
     Active Substance: RITUXIMAB
     Indication: Central nervous system lymphoma
     Dosage: UNK
     Route: 065
  2. RITUXIMAB [Suspect]
     Active Substance: RITUXIMAB
     Indication: Diffuse large B-cell lymphoma
  3. CYTARABINE [Concomitant]
     Active Substance: CYTARABINE
     Dosage: UNK
     Route: 065
  4. PROCARBAZINE [Concomitant]
     Active Substance: PROCARBAZINE
     Dosage: UNK
     Route: 065
  5. VINCRISTINE [Concomitant]
     Active Substance: VINCRISTINE
     Dosage: UNK
     Route: 065
  6. TEMOZOLOMIDE [Concomitant]
     Active Substance: TEMOZOLOMIDE
     Dosage: UNK
     Route: 065
  7. THIOTEPA [Concomitant]
     Active Substance: THIOTEPA
  8. METHOTREXATE [Concomitant]
     Active Substance: METHOTREXATE
     Dosage: UNK
     Route: 065

REACTIONS (15)
  - Death [Fatal]
  - Central nervous system lymphoma [Unknown]
  - Radiation necrosis [Unknown]
  - Dry mouth [Unknown]
  - Radiation skin injury [Unknown]
  - Urinary incontinence [Unknown]
  - Vomiting [Unknown]
  - Rhinorrhoea [Unknown]
  - Vertigo [Unknown]
  - Disturbance in attention [Unknown]
  - Gait disturbance [Unknown]
  - Nausea [Unknown]
  - Headache [Unknown]
  - Alopecia [Unknown]
  - Fatigue [Unknown]
